FAERS Safety Report 6751402-X (Version None)
Quarter: 2010Q2

REPORT INFORMATION
  Report Type: 
  Country: None (occurrence: None)
  Receive Date: 20100528
  Receipt Date: 20100514
  Transmission Date: 20101027
  Serious: Yes (Other)
  Sender: FDA-Public Use
  Company Number: JP-1182005

PATIENT

DRUGS (3)
  1. TRAVATAN Z (TRAVOPROST)TRAVATAN Z(TRAVOPROST) 0.004% OPHTHAL OPHTHALMI [Suspect]
  2. TRAVATAN Z [Suspect]
     Dosage: 1 GTT QD, OPHTHALMIC
     Route: 047
  3. AZOPT [Concomitant]

REACTIONS (1)
  - MACULAR OEDEMA [None]
